FAERS Safety Report 4668521-4 (Version None)
Quarter: 2005Q2

REPORT INFORMATION
  Report Type: 
  Country: None (occurrence: None)
  Receive Date: 20050523
  Receipt Date: 20040923
  Transmission Date: 20051028
  Serious: Yes (Other)
  Sender: FDA-Public Use
  Company Number: PHEH2004US10320

PATIENT
  Age: 56 Year
  Sex: Male

DRUGS (6)
  1. WARFARIN SODIUM [Concomitant]
  2. ARANESP [Concomitant]
  3. ZOLEDRONATE [Suspect]
     Dosage: 4 MG, QMO
     Route: 042
     Dates: start: 20020901
  4. THALIDOMIDE [Concomitant]
     Dosage: 100 MG, UNK
     Dates: start: 20010401
  5. THALIDOMIDE [Concomitant]
     Dosage: 300 MG, UNK
     Dates: start: 20021201
  6. BORTEZOMIB [Concomitant]
     Dosage: UNK, UNK
     Dates: start: 20030601, end: 20030801

REACTIONS (3)
  - NEUROPATHY [None]
  - OSTEONECROSIS [None]
  - PAIN IN JAW [None]
